FAERS Safety Report 8555533-3 (Version None)
Quarter: 2012Q3

REPORT INFORMATION
  Report Type: 
  Country: None (occurrence: None)
  Receive Date: 20120731
  Receipt Date: 20111107
  Transmission Date: 20120928
  Serious: No
  Sender: FDA-Public Use
  Company Number: US-ASTRAZENECA-2011SE00197

PATIENT
  Age: 56 Year
  Sex: Female
  Weight: 88.5 kg

DRUGS (12)
  1. SEROQUEL [Suspect]
     Indication: DEPRESSION
     Route: 048
     Dates: start: 20080101, end: 20110101
  2. OXYCODONE HCL [Concomitant]
  3. SEROQUEL [Suspect]
     Indication: RESTLESSNESS
     Route: 048
     Dates: start: 20080101, end: 20110101
  4. EFFEXOR [Concomitant]
  5. SEROQUEL [Suspect]
     Route: 048
     Dates: start: 20090101
  6. CELEBREX [Concomitant]
  7. METOPROLOL TARTRATE [Concomitant]
  8. SEROQUEL [Suspect]
     Route: 048
     Dates: start: 20090101
  9. SEROQUEL [Suspect]
     Route: 048
     Dates: start: 20090101
  10. FLEXERIL [Concomitant]
  11. REQUIP [Concomitant]
  12. SEROQUEL [Suspect]
     Indication: AFFECTIVE DISORDER
     Route: 048
     Dates: start: 20080101, end: 20110101

REACTIONS (6)
  - ARTHRITIS [None]
  - FIBROMYALGIA [None]
  - DRUG DOSE OMISSION [None]
  - RESTLESSNESS [None]
  - ANXIETY [None]
  - NASOPHARYNGITIS [None]
